FAERS Safety Report 10382394 (Version 1)
Quarter: 2014Q3

REPORT INFORMATION
  Report Type: Report from Study
  Country: US (occurrence: US)
  Receive Date: 20140813
  Receipt Date: 20140813
  Transmission Date: 20150326
  Serious: Yes (Other)
  Sender: FDA-Public Use
  Company Number: US-ABBVIE-14P-163-1270524-00

PATIENT
  Age: 29 Year
  Sex: Female

DRUGS (6)
  1. HUMIRA [Suspect]
     Active Substance: ADALIMUMAB
  2. HUMIRA [Suspect]
     Active Substance: ADALIMUMAB
     Dates: start: 20140806, end: 20140806
  3. HUMIRA [Suspect]
     Active Substance: ADALIMUMAB
     Indication: CROHN^S DISEASE
     Dates: start: 20140709, end: 20140709
  4. IMURAN [Concomitant]
     Active Substance: AZATHIOPRINE
     Indication: CROHN^S DISEASE
  5. ZYRTEC [Concomitant]
     Active Substance: CETIRIZINE HYDROCHLORIDE
     Indication: HYPERSENSITIVITY
  6. HUMIRA [Suspect]
     Active Substance: ADALIMUMAB
     Dates: start: 20140723, end: 20140723

REACTIONS (2)
  - Incorrect dose administered [Unknown]
  - Umbilical hernia [Recovering/Resolving]

NARRATIVE: CASE EVENT DATE: 201407
